FAERS Safety Report 20372850 (Version 1)
Quarter: 2022Q1

REPORT INFORMATION
  Report Type: Spontaneous
  Country: US (occurrence: US)
  Receive Date: 20220125
  Receipt Date: 20220125
  Transmission Date: 20220423
  Serious: Yes (Hospitalization)
  Sender: FDA-Public Use
  Company Number: US-JNJFOC-20220129810

PATIENT
  Age: 30 Year
  Sex: Male

DRUGS (1)
  1. PONVORY [Suspect]
     Active Substance: PONESIMOD
     Indication: Multiple sclerosis
     Route: 065
     Dates: start: 20211231

REACTIONS (6)
  - Blood pressure diastolic increased [Unknown]
  - Multiple sclerosis relapse [Unknown]
  - Feeling abnormal [Unknown]
  - Chromaturia [Unknown]
  - Dysarthria [Unknown]
  - Product dose omission issue [Unknown]

NARRATIVE: CASE EVENT DATE: 20220101
